FAERS Safety Report 4901228-4 (Version None)
Quarter: 2006Q1

REPORT INFORMATION
  Report Type: 
  Country: None (occurrence: None)
  Receive Date: 20060202
  Receipt Date: 20060125
  Transmission Date: 20060701
  Serious: Yes (Hospitalization)
  Sender: FDA-Public Use
  Company Number: 2006BI001425

PATIENT
  Age: 66 Year
  Sex: Female

DRUGS (1)
  1. AVONEX [Suspect]
     Indication: MULTIPLE SCLEROSIS
     Dosage: 30 UG;QW;IM
     Route: 030

REACTIONS (6)
  - BLADDER PERFORATION [None]
  - COMA [None]
  - CORONARY ARTERIAL STENT INSERTION [None]
  - PARALYSIS [None]
  - PNEUMONIA [None]
  - PROCEDURAL COMPLICATION [None]
